FAERS Safety Report 5950979-1 (Version None)
Quarter: 2008Q4

REPORT INFORMATION
  Report Type: 
  Country: None (occurrence: None)
  Receive Date: 20081110
  Receipt Date: 20081103
  Transmission Date: 20090506
  Serious: Yes (Hospitalization)
  Sender: FDA-Public Use
  Company Number: 2008SP018900

PATIENT
  Age: 55 Year
  Sex: Female
  Weight: 80.5 kg

DRUGS (3)
  1. TEMODAR [Suspect]
     Indication: GLIOBLASTOMA MULTIFORME
     Dosage: 180 MG; QD; PO, 180 MG; QD; PO, 180 MG; QD; PO
     Route: 048
     Dates: start: 20080814, end: 20080903
  2. TEMODAR [Suspect]
     Indication: GLIOBLASTOMA MULTIFORME
     Dosage: 180 MG; QD; PO, 180 MG; QD; PO, 180 MG; QD; PO
     Route: 048
     Dates: start: 20081007, end: 20081027
  3. TEMODAR [Suspect]
     Indication: GLIOBLASTOMA MULTIFORME
     Dosage: 180 MG; QD; PO, 180 MG; QD; PO, 180 MG; QD; PO
     Route: 048
     Dates: start: 20080418

REACTIONS (11)
  - ARACHNOID CYST [None]
  - BACTERIAL INFECTION [None]
  - CSF CULTURE POSITIVE [None]
  - ENTEROBACTER INFECTION [None]
  - FALL [None]
  - HYDROCEPHALUS [None]
  - INTRACRANIAL HYPOTENSION [None]
  - MENINGITIS [None]
  - URINARY TRACT INFECTION FUNGAL [None]
  - VISUAL ACUITY REDUCED [None]
  - WOUND INFECTION [None]
